FAERS Safety Report 9511406 (Version 1)
Quarter: 2013Q3

REPORT INFORMATION
  Report Type: Spontaneous
  Country: US (occurrence: None)
  Receive Date: 20130906
  Receipt Date: 20130906
  Transmission Date: 20140515
  Serious: Yes (Life-Threatening, Other)
  Sender: FDA-Public Use
  Company Number: 001591179A

PATIENT
  Age: 29 Year
  Sex: Female

DRUGS (7)
  1. PROACTIV RENEWING CLEANSER [Suspect]
     Indication: ACNE
     Dosage: TWICE DAILY DERMAL
     Route: 023
     Dates: start: 20130812, end: 20130813
  2. PROACTIV REPAIRING TREATMENT [Suspect]
     Indication: ACNE
     Dosage: TWICE DAILY DERMAL
     Route: 023
     Dates: start: 20130812, end: 20130813
  3. PROACTIV REFINING MASK [Suspect]
     Indication: ACNE
     Dosage: TWICE DAILY DERMAL
     Route: 023
     Dates: start: 20130812, end: 20130813
  4. PROACTIV SPF 15 MOISTURIZER [Suspect]
     Indication: ACNE
     Dosage: TWICE DAILY DERMAL
     Route: 023
     Dates: start: 20130812, end: 20130813
  5. PROACTIV EXTRA STRENGTH TONER [Suspect]
     Indication: ACNE
     Dosage: TWICE DAILY DERMAL
     Route: 023
     Dates: start: 20130812, end: 20130813
  6. IBUPROFEN PRN [Concomitant]
  7. BENADRYL PRN [Concomitant]

REACTIONS (6)
  - Rash [None]
  - Swelling face [None]
  - Urticaria [None]
  - Dyspnoea [None]
  - Local swelling [None]
  - Anaphylactic reaction [None]
